FAERS Safety Report 9375523 (Version 1)
Quarter: 2013Q2

REPORT INFORMATION
  Report Type: Spontaneous
  Country: BR (occurrence: BR)
  Receive Date: 20130628
  Receipt Date: 20130628
  Transmission Date: 20140414
  Serious: Yes (Hospitalization, Other)
  Sender: FDA-Public Use
  Company Number: PHHY2013BR067076

PATIENT
  Sex: 0

DRUGS (1)
  1. DIOVAN TRIPLE [Suspect]
     Dosage: UNK (VALSARTAN 160 MG, AMLODIPINE 5 MG, AND HYDROCHLOROTHIAZIDE 12.5 MG), UNK

REACTIONS (1)
  - Infarction [Unknown]
